FAERS Safety Report 17664188 (Version 1)
Quarter: 2020Q2

REPORT INFORMATION
  Report Type: Spontaneous
  Country: US (occurrence: US)
  Receive Date: 20200414
  Receipt Date: 20200414
  Transmission Date: 20200713
  Serious: No
  Sender: FDA-Public Use
  Company Number: US-009507513-2004USA003495

PATIENT
  Age: 81 Year
  Sex: Female

DRUGS (9)
  1. ASMANEX [Suspect]
     Active Substance: MOMETASONE FUROATE
     Dosage: 60 DOSES; ONE PUFF IN THE MORNING AND ONE PUFF AT NIGHT
     Route: 055
     Dates: start: 20200326
  2. PLAVIX [Concomitant]
     Active Substance: CLOPIDOGREL BISULFATE
  3. METOPROLOL. [Concomitant]
     Active Substance: METOPROLOL
  4. ASMANEX [Suspect]
     Active Substance: MOMETASONE FUROATE
     Indication: CHRONIC OBSTRUCTIVE PULMONARY DISEASE
     Dosage: 60 DOSES; ONE PUFF IN THE MORNING AND ONE PUFF AT NIGHT
     Route: 055
     Dates: start: 201504
  5. ISOSORBIDE. [Concomitant]
     Active Substance: ISOSORBIDE
  6. MULTAQ [Concomitant]
     Active Substance: DRONEDARONE
  7. LIPITOR [Concomitant]
     Active Substance: ATORVASTATIN CALCIUM
  8. ATROVENT [Concomitant]
     Active Substance: IPRATROPIUM BROMIDE
  9. ASPIRIN. [Concomitant]
     Active Substance: ASPIRIN

REACTIONS (5)
  - Dry mouth [Not Recovered/Not Resolved]
  - Poor quality device used [Unknown]
  - Product use in unapproved indication [Unknown]
  - Cough [Not Recovered/Not Resolved]
  - Product quality issue [Unknown]

NARRATIVE: CASE EVENT DATE: 201504
